FAERS Safety Report 4564257-9 (Version None)
Quarter: 2005Q1

REPORT INFORMATION
  Report Type: 
  Country: None (occurrence: None)
  Receive Date: 20050128
  Receipt Date: 20040712
  Transmission Date: 20050727
  Serious: No
  Sender: FDA-Public Use
  Company Number: US-GLAXOSMITHKLINE-A0517830A

PATIENT
  Sex: Female

DRUGS (2)
  1. COMBIVIR [Suspect]
     Indication: ANTIVIRAL PROPHYLAXIS
     Dosage: 1TAB UNKNOWN
     Route: 048
     Dates: start: 20040301, end: 20040401
  2. NO CONCURRENT MEDICATION [Concomitant]

REACTIONS (1)
  - MENSTRUATION IRREGULAR [None]
